FAERS Safety Report 11456063 (Version 3)
Quarter: 2016Q4

REPORT INFORMATION
  Report Type: Report from Study
  Country: AT (occurrence: AT)
  Receive Date: 20150903
  Receipt Date: 20161004
  Transmission Date: 20170206
  Serious: Yes (Death, Other)
  Sender: FDA-Public Use
  Company Number: AT-BAYER-2015-360627

PATIENT
  Sex: Male
  Weight: 98 kg

DRUGS (14)
  1. RADIUM-223 DICHLORIDE [Suspect]
     Active Substance: RADIUM RA-223 DICHLORIDE
     Indication: PROSTATE CANCER STAGE IV
     Dosage: 4970 KBQ, QD
     Route: 042
     Dates: start: 20150528, end: 20150528
  2. HYDAL RETARD [Concomitant]
     Active Substance: HYDROMORPHONE HYDROCHLORIDE
     Dosage: 25 MG, BID
     Dates: start: 201501, end: 201505
  3. ALNA RETARD [Concomitant]
     Active Substance: TAMSULOSIN HYDROCHLORIDE
     Dosage: 0.4 MG, QD
  4. XGEVA [Concomitant]
     Active Substance: DENOSUMAB
     Dosage: 120 MG, Q4WK
     Dates: start: 2013
  5. NOVALGIN [Concomitant]
     Active Substance: METAMIZOLE SODIUM
     Dosage: 40 GTT, BID
     Dates: start: 201501, end: 201505
  6. CALCIUM GLYCEROPHOSPHATE\CELLULOSE\POLYETHYLENE GLYCOL\SACCHARIN SODIUM\SODIUM HYDROXIDE\SODIUM LAURYL SULFATE\SODIUM MAGNESIUM SILICATE\SODIUM MONOFLUOROPHOSPHATE\SORBITOL\WATER [Concomitant]
     Active Substance: CALCIUM GLYCEROPHOSPHATE\POLYETHYLENE GLYCOLS\POWDERED CELLULOSE\SACCHARIN SODIUM DIHYDRATE\SODIUM HYDROXIDE\SODIUM LAURYL SULFATE\SODIUM MAGNESIUM SILICATE\SODIUM MONOFLUOROPHOSPHATE\SORBITOL\WATER
     Dosage: 1 SACHET PRN
     Dates: start: 20150403
  7. CEOLAT [Concomitant]
     Dosage: DOSE UNKNOWN, PRN
     Dates: start: 20150501
  8. RADIUM-223 DICHLORIDE [Suspect]
     Active Substance: RADIUM RA-223 DICHLORIDE
     Indication: PROSTATE CANCER STAGE IV
     Dosage: 5370 KBQ; ROUTE: INJECTION
     Route: 042
     Dates: start: 20150402, end: 20150402
  9. HYDAL [Concomitant]
     Active Substance: HYDROMORPHONE HYDROCHLORIDE
     Dosage: 5.2 MG, BID
     Dates: start: 201501, end: 201505
  10. RADIUM-223 DICHLORIDE [Suspect]
     Active Substance: RADIUM RA-223 DICHLORIDE
     Indication: METASTASES TO BONE
     Dosage: 5100 KBQ, QD
     Route: 042
     Dates: start: 20150430, end: 20150430
  11. PANTOPRAZOLE [Concomitant]
     Active Substance: PANTOPRAZOLE SODIUM
     Dosage: 40 MG, QD
     Dates: start: 201401
  12. FENTANYL. [Concomitant]
     Active Substance: FENTANYL
     Dosage: 400 MG, PRN
     Dates: start: 201502, end: 201505
  13. COLOFAC [Concomitant]
     Active Substance: MEBEVERINE HYDROCHLORIDE
     Dosage: 200 MG, BID
     Dates: start: 201403
  14. DENOSUMAB [Concomitant]
     Active Substance: DENOSUMAB
     Dosage: 120 MG, Q4WK
     Dates: start: 2013

REACTIONS (1)
  - Pancytopenia [Fatal]

NARRATIVE: CASE EVENT DATE: 20150611
